FAERS Safety Report 12201880 (Version 2)
Quarter: 2016Q2

REPORT INFORMATION
  Report Type: Spontaneous
  Country: NL (occurrence: NL)
  Receive Date: 20160322
  Receipt Date: 20160426
  Transmission Date: 20160815
  Serious: Yes (Other)
  Sender: FDA-Public Use
  Company Number: NL-TEVA-645767ISR

PATIENT
  Sex: Male

DRUGS (4)
  1. SIMVASTATIN RANBAXY [Concomitant]
     Dosage: TAKEN FROM INDIA FOR AROUND A YEAR UNTIL IT WAS NO FURTHER AVAILABLE IN NETHERLANDS
     Route: 065
     Dates: end: 2013
  2. KETOCONAZOLE SHAMPOO [Suspect]
     Active Substance: KETOCONAZOLE
     Route: 065
     Dates: start: 2008
  3. PRAVASTATIN PHARMCHEMIE [Concomitant]
     Route: 065
     Dates: start: 2009
  4. CARBASALATE CALCIUM RATIOPHARM 100 MG SACHET [Suspect]
     Active Substance: CARBASALATE
     Indication: ANTICOAGULANT THERAPY
     Route: 065
     Dates: start: 2011

REACTIONS (3)
  - Drug effect decreased [None]
  - Pneumonia [None]
  - Gastric haemorrhage [Recovered/Resolved]

NARRATIVE: CASE EVENT DATE: 2013
